FAERS Safety Report 21343985 (Version 1)
Quarter: 2022Q3

REPORT INFORMATION
  Report Type: Spontaneous
  Country: US (occurrence: US)
  Receive Date: 20220916
  Receipt Date: 20220916
  Transmission Date: 20221027
  Serious: Yes (Other)
  Sender: FDA-Public Use
  Company Number: US-SA-SAC20220912000693

PATIENT
  Age: 75 Year
  Sex: Female
  Weight: 65.76 kg

DRUGS (16)
  1. ICY HOT (MENTHOL) [Suspect]
     Active Substance: MENTHOL
     Indication: Back pain
     Dosage: UNK
     Route: 061
     Dates: start: 20211116
  2. ALBUTEROL SULFATE [Concomitant]
     Active Substance: ALBUTEROL SULFATE
     Dosage: UNK, PRN 1-2 PUFFS EVERY 4 TO 6 HOURS OR AS NEEDED
     Dates: start: 20160624
  3. CHLORHEXIDINE GLUCONATE [Concomitant]
     Active Substance: CHLORHEXIDINE GLUCONATE
     Dosage: UNK UNK, BID RINSE 1/2 OZ TWICE A DAYFOR 30 SECONDS
     Route: 048
     Dates: start: 202104
  4. CLINDAMYCIN PHOSPHATE [Concomitant]
     Active Substance: CLINDAMYCIN PHOSPHATE
     Dosage: UNK UNK, QD BEFORE NOON
     Route: 061
     Dates: start: 20211110
  5. CLOBETASOL PROPIONATE [Concomitant]
     Active Substance: CLOBETASOL PROPIONATE
     Dosage: UNK UNK, QD BEFORE NOON TO SCALP
     Route: 061
     Dates: start: 20211110
  6. DICLOFENAC SODIUM [Concomitant]
     Active Substance: DICLOFENAC SODIUM
     Dosage: 2 G, PRN EXTERNALLY 2 TO 3 TIMES DAILY AS NEEDED
     Dates: start: 20210510
  7. DIOVAN [Concomitant]
     Active Substance: VALSARTAN
     Dosage: 1 DF, QD
     Dates: start: 20101116
  8. DOXYCYCLINE HYCLATE [Concomitant]
     Active Substance: DOXYCYCLINE HYCLATE
     Dosage: 1 DF, QD
     Route: 048
     Dates: start: 20211109
  9. ESTRACE [Concomitant]
     Active Substance: ESTRADIOL
     Dosage: 2 G, QW
     Route: 067
     Dates: start: 20190308
  10. FLUTICASONE PROPIONATE [Concomitant]
     Active Substance: FLUTICASONE PROPIONATE
     Dosage: UNK UNK, QD 2 SPRAYS IN EACH NOSTRIL
     Route: 045
     Dates: start: 20181121
  11. HYDROCORTISONE ACETATE [Concomitant]
     Active Substance: HYDROCORTISONE ACETATE
     Dosage: 1 DF, QD
     Route: 054
     Dates: start: 20200730
  12. IPRATROPIUM BROMIDE [Concomitant]
     Active Substance: IPRATROPIUM BROMIDE
     Dosage: UNK
     Dates: start: 20190612
  13. LIDOCAINE [Concomitant]
     Active Substance: LIDOCAINE
     Dosage: UNK 1 PATCH EXTERNALLY TO SKIN FOR 12 HOURS
     Route: 061
     Dates: start: 20200212
  14. OMEPRAZOLE [Concomitant]
     Active Substance: OMEPRAZOLE
     Dosage: 1 DF, BID
     Route: 048
     Dates: start: 20190628
  15. PAZEO [Concomitant]
     Active Substance: OLOPATADINE HYDROCHLORIDE
     Dosage: UNK
     Dates: start: 20190410
  16. VITAMIN D3 [Concomitant]
     Active Substance: CHOLECALCIFEROL
     Dosage: 1 DF, QD
     Dates: start: 20160810

REACTIONS (10)
  - Scar [Unknown]
  - Nerve injury [Unknown]
  - Burns second degree [Unknown]
  - Back pain [Unknown]
  - Musculoskeletal discomfort [Unknown]
  - Application site vesicles [Unknown]
  - Application site wound [Recovered/Resolved]
  - Hyperaemia [Unknown]
  - Skin hyperpigmentation [Unknown]
  - Hypertrophic scar [Unknown]

NARRATIVE: CASE EVENT DATE: 20211116
